FAERS Safety Report 20693232 (Version 2)
Quarter: 2023Q2

REPORT INFORMATION
  Report Type: Spontaneous
  Country: US (occurrence: US)
  Receive Date: 20220410
  Receipt Date: 20230504
  Transmission Date: 20230721
  Serious: No
  Sender: FDA-Public Use
  Company Number: US-BRISTOL-MYERS SQUIBB COMPANY-2022-011939

PATIENT
  Age: 63 Year
  Sex: Female

DRUGS (2)
  1. ABRAXANE [Suspect]
     Active Substance: PACLITAXEL
     Indication: Product used for unknown indication
     Dosage: FREQ: ON DAYS 1, 8, 15 OF A 28 DAY CYCLE
     Route: 042
  2. ABRAXANE [Suspect]
     Active Substance: PACLITAXEL
     Route: 042

REACTIONS (1)
  - Adverse event [Unknown]
